FAERS Safety Report 10985172 (Version 1)
Quarter: 2015Q2

REPORT INFORMATION
  Report Type: Spontaneous
  Country: US (occurrence: None)
  Receive Date: 20150403
  Receipt Date: 20150403
  Transmission Date: 20150821
  Serious: No
  Sender: FDA-Public Use
  Company Number: None

PATIENT
  Age: 56 Year
  Sex: Female

DRUGS (1)
  1. COPAXONE [Suspect]
     Active Substance: GLATIRAMER ACETATE
     Indication: MULTIPLE SCLEROSIS
     Route: 058
     Dates: start: 20120401

REACTIONS (5)
  - Vaginal discharge [None]
  - Weight increased [None]
  - Visual impairment [None]
  - Skin texture abnormal [None]
  - Hyperhidrosis [None]

NARRATIVE: CASE EVENT DATE: 20120402
